FAERS Safety Report 13710084 (Version 1)
Quarter: 2017Q3

REPORT INFORMATION
  Report Type: Spontaneous
  Country: US (occurrence: US)
  Receive Date: 20170703
  Receipt Date: 20170703
  Transmission Date: 20171127
  Serious: No
  Sender: FDA-Public Use
  Company Number: US-TEVA-735194ACC

PATIENT
  Sex: Female

DRUGS (1)
  1. LIDOCAINE WATSON [Suspect]
     Active Substance: LIDOCAINE

REACTIONS (4)
  - Erythema [Unknown]
  - Application site erythema [None]
  - Skin warm [Unknown]
  - Application site warmth [None]
